FAERS Safety Report 24800703 (Version 2)
Quarter: 2025Q1

REPORT INFORMATION
  Report Type: Report from Study
  Country: US (occurrence: US)
  Receive Date: 20250102
  Receipt Date: 20250106
  Transmission Date: 20250409
  Serious: Yes (Other)
  Sender: NOVARTIS
  Company Number: US-002147023-NVSC2024US247160

PATIENT
  Age: 10 Year
  Sex: Male

DRUGS (2)
  1. ILARIS [Suspect]
     Active Substance: CANAKINUMAB
     Indication: Pyrexia
     Dosage: 150 MG, QMO
     Route: 058
     Dates: start: 20221017
  2. ILARIS [Suspect]
     Active Substance: CANAKINUMAB
     Route: 058
     Dates: start: 20221022

REACTIONS (1)
  - Pneumonia [Unknown]

NARRATIVE: CASE EVENT DATE: 20241230
